FAERS Safety Report 17496749 (Version 1)
Quarter: 2020Q1

REPORT INFORMATION
  Report Type: Spontaneous
  Country: US (occurrence: US)
  Receive Date: 20200224
  Receipt Date: 20200224
  Transmission Date: 20200409
  Serious: Yes (Hospitalization)
  Sender: FDA-Public Use
  Company Number: None

PATIENT
  Age: 64 Year
  Sex: Male
  Weight: 55 kg

DRUGS (1)
  1. ZOLPIDEM (ZOLPIDEM TARTRATE 10MG TAB) [Suspect]
     Active Substance: ZOLPIDEM TARTRATE
     Route: 048
     Dates: start: 20190506, end: 20191107

REACTIONS (2)
  - Delirium [None]
  - Confusional state [None]

NARRATIVE: CASE EVENT DATE: 20191101
